FAERS Safety Report 4553029-7 (Version None)
Quarter: 2005Q1

REPORT INFORMATION
  Report Type: 
  Country: None (occurrence: None)
  Receive Date: 20050113
  Receipt Date: 20041229
  Transmission Date: 20050727
  Serious: Yes (Death)
  Sender: FDA-Public Use
  Company Number: 2004AP02885

PATIENT
  Age: 81 Year
  Sex: Female

DRUGS (1)
  1. ACCOLATE [Suspect]
     Dosage: 40 MG DAILY PO
     Route: 048
     Dates: start: 20020101

REACTIONS (6)
  - ASCITES [None]
  - HEPATIC CIRRHOSIS [None]
  - HEPATITIS [None]
  - PERITONITIS BACTERIAL [None]
  - SEPTIC SHOCK [None]
  - SPLENOMEGALY [None]
